FAERS Safety Report 7305267-8 (Version None)
Quarter: 2011Q1

REPORT INFORMATION
  Report Type: 
  Country: None (occurrence: None)
  Receive Date: 20110222
  Receipt Date: 20110215
  Transmission Date: 20110831
  Serious: Yes (Other)
  Sender: FDA-Public Use
  Company Number: CH-PFIZER INC-2011034034

PATIENT
  Age: 21 Year
  Sex: Female

DRUGS (2)
  1. PROCUTOL [Suspect]
     Indication: ACNE
     Dosage: UNK
     Route: 050
     Dates: start: 20090101, end: 20100316
  2. DALACIN T [Suspect]
     Indication: ACNE
     Dosage: UNK
     Route: 050
     Dates: start: 20090101, end: 20100316

REACTIONS (1)
  - ABORTION SPONTANEOUS [None]
